FAERS Safety Report 8156645-9 (Version None)
Quarter: 2012Q1

REPORT INFORMATION
  Report Type: 
  Country: None (occurrence: None)
  Receive Date: 20120222
  Receipt Date: 20120207
  Transmission Date: 20120608
  Serious: Yes (Hospitalization)
  Sender: FDA-Public Use
  Company Number: FR-NOVOPROD-344966

PATIENT
  Age: 65 Year

DRUGS (9)
  1. VERPAMIL HCL [Suspect]
     Dosage: 120 MG, QD
     Route: 048
  2. LEVOTHYROXINE SODIUM [Suspect]
     Dosage: 37.5 UG, QD
     Route: 048
  3. SYMBICORT [Suspect]
     Dosage: 412 A?G/ QD
     Route: 048
  4. INDAPAMIDE [Suspect]
     Dosage: 1.5 MG, QD
     Route: 048
  5. PENTOXIFYLLINE [Suspect]
     Dosage: 10 MG, QW
     Route: 048
  6. DOBUTAMINE HCL [Concomitant]
     Indication: CARDIOGENIC SHOCK
  7. EZETIMIBE [Suspect]
     Dosage: 50 MG, QD
     Route: 048
  8. REPAGLINIDE [Suspect]
     Indication: TYPE 2 DIABETES MELLITUS
     Dosage: 0.5 MG, TID
     Route: 048
  9. IRBESARTAN [Suspect]
     Dosage: 150 MG, QD
     Route: 048

REACTIONS (1)
  - EOSINOPHILIA [None]
